FAERS Safety Report 12242385 (Version 1)
Quarter: 2016Q2

REPORT INFORMATION
  Report Type: Spontaneous
  Country: None (occurrence: US)
  Receive Date: 20160406
  Receipt Date: 20160406
  Transmission Date: 20160815
  Serious: Yes (Hospitalization)
  Sender: FDA-Public Use
  Company Number: US-STANDARD HOMEOPATHIC COMPANY-1050273

PATIENT
  Age: 62 Year
  Sex: Male

DRUGS (1)
  1. PRID [Suspect]
     Active Substance: HOMEOPATHICS
     Indication: THERAPEUTIC SKIN CARE TOPICAL
     Route: 050
     Dates: start: 20160306, end: 20160306

REACTIONS (5)
  - Suicidal ideation [None]
  - Skin irritation [Unknown]
  - Erythema [None]
  - Pain of skin [None]
  - Pruritus [None]

NARRATIVE: CASE EVENT DATE: 20160306
